FAERS Safety Report 10209148 (Version 1)
Quarter: 2014Q2

REPORT INFORMATION
  Report Type: Spontaneous
  Country: US (occurrence: US)
  Receive Date: 20140530
  Receipt Date: 20140530
  Transmission Date: 20141212
  Serious: No
  Sender: FDA-Public Use
  Company Number: US-009507513-1405USA014092

PATIENT
  Age: 69 Year
  Sex: Female

DRUGS (5)
  1. DULERA [Suspect]
     Indication: WHEEZING
     Dosage: 200/5 MCG, 2 PUFFS TWICE DAILY
     Route: 055
  2. VENTOLIN (ALBUTEROL) [Concomitant]
  3. COZAAR [Concomitant]
  4. ZOCOR [Concomitant]
  5. LEVOTHYROXINE SODIUM [Concomitant]

REACTIONS (4)
  - Dyspnoea [Not Recovered/Not Resolved]
  - Drug dose omission [Unknown]
  - Product quality issue [Unknown]
  - Drug administration error [Unknown]
